FAERS Safety Report 11334679 (Version 1)
Quarter: 2015Q3

REPORT INFORMATION
  Report Type: Spontaneous
  Country: US (occurrence: US)
  Receive Date: 20150804
  Receipt Date: 20150804
  Transmission Date: 20151125
  Serious: No
  Sender: FDA-Public Use
  Company Number: US-TEVA-506760USA

PATIENT
  Sex: Female

DRUGS (1)
  1. VENLAFAXINE [Suspect]
     Active Substance: VENLAFAXINE HYDROCHLORIDE
     Indication: DEPRESSION
     Route: 065
     Dates: start: 201406

REACTIONS (4)
  - Anxiety [Recovered/Resolved]
  - Initial insomnia [Recovered/Resolved]
  - Product formulation issue [Unknown]
  - Insomnia [Unknown]

NARRATIVE: CASE EVENT DATE: 201406
